FAERS Safety Report 6420180-6 (Version None)
Quarter: 2009Q4

REPORT INFORMATION
  Report Type: 
  Country: None (occurrence: None)
  Receive Date: 20091029
  Receipt Date: 20090515
  Transmission Date: 20100525
  Serious: Yes (Death, Hospitalization)
  Sender: FDA-Public Use
  Company Number: PHEH2009US12827

PATIENT
  Age: 63 Year
  Sex: Male
  Weight: 50.09 kg

DRUGS (6)
  1. EXJADE [Suspect]
     Indication: CHRONIC MYELOID LEUKAEMIA
     Dosage: 125 MG, QD
  2. FOLIC ACID [Concomitant]
     Dosage: UNK
  3. ESOMEPRAZOLE MAGNESIUM [Concomitant]
     Dosage: UNK
  4. HYDROCODONE [Concomitant]
     Dosage: UNK
  5. SUCRALFATE [Concomitant]
     Dosage: UNK
  6. AMINOCAPROIC ACID [Concomitant]
     Dosage: UNK

REACTIONS (2)
  - DEATH [None]
  - PNEUMONIA [None]
